FAERS Safety Report 21313839 (Version 1)
Quarter: 2022Q3

REPORT INFORMATION
  Report Type: Spontaneous
  Country: US (occurrence: US)
  Receive Date: 20220909
  Receipt Date: 20220909
  Transmission Date: 20221026
  Serious: Yes (Other)
  Sender: FDA-Public Use
  Company Number: US-BRISTOL-MYERS SQUIBB COMPANY-2022-102867

PATIENT
  Age: 66 Year
  Sex: Male

DRUGS (6)
  1. AZACITIDINE [Suspect]
     Active Substance: AZACITIDINE
     Indication: Blastic plasmacytoid dendritic cell neoplasia
     Dosage: FOR 7 DAYS (CYCLE 1 TO 2)
     Route: 065
  2. AZACITIDINE [Suspect]
     Active Substance: AZACITIDINE
     Dosage: 1 TO 5 DAYS (CYCLE 3 TO 5)
     Route: 065
  3. AZACITIDINE [Suspect]
     Active Substance: AZACITIDINE
     Dosage: 1 TO 7 DAYS (CYCLE 6)
     Route: 065
  4. VENETOCLAX [Suspect]
     Active Substance: VENETOCLAX
     Indication: Blastic plasmacytoid dendritic cell neoplasia
     Dosage: DAILY (FOR 28 DAYS) (CYCLE 1 TO 2)
     Route: 065
  5. VENETOCLAX [Suspect]
     Active Substance: VENETOCLAX
     Dosage: FOR 14 DAYS (CYCLE 3 TO 5)
     Route: 065
  6. VENETOCLAX [Suspect]
     Active Substance: VENETOCLAX
     Dosage: FOR 28 DAYS (CYCLE 6)
     Route: 065

REACTIONS (4)
  - Cytopenia [Unknown]
  - Infection reactivation [Unknown]
  - Latent tuberculosis [Unknown]
  - Intentional product use issue [Unknown]
